FAERS Safety Report 8343789-1 (Version None)
Quarter: 2012Q2

REPORT INFORMATION
  Report Type: 
  Country: None (occurrence: None)
  Receive Date: 20120508
  Receipt Date: 20120430
  Transmission Date: 20120825
  Serious: Yes (Hospitalization)
  Sender: FDA-Public Use
  Company Number: US-BAYER-2011-097231

PATIENT
  Age: 28 Year
  Sex: Female
  Weight: 92.063 kg

DRUGS (3)
  1. YASMIN [Suspect]
     Indication: CONTRACEPTION
     Dosage: UNK
     Route: 048
     Dates: start: 20061001, end: 20071201
  2. YASMIN [Suspect]
     Indication: ACNE
     Dosage: UNK
     Dates: start: 20080306, end: 20090505
  3. YASMIN [Suspect]
     Indication: PREMENSTRUAL SYNDROME

REACTIONS (13)
  - ABDOMINAL PAIN [None]
  - THROMBOSIS [None]
  - PAIN IN EXTREMITY [None]
  - EMOTIONAL DISTRESS [None]
  - OEDEMA PERIPHERAL [None]
  - HYPOAESTHESIA [None]
  - ANXIETY [None]
  - PULMONARY EMBOLISM [None]
  - DEPRESSION [None]
  - RENAL ARTERY THROMBOSIS [None]
  - GENERAL PHYSICAL HEALTH DETERIORATION [None]
  - PANIC ATTACK [None]
  - PARAESTHESIA [None]
